FAERS Safety Report 26169234 (Version 1)
Quarter: 2025Q4

REPORT INFORMATION
  Report Type: Spontaneous
  Country: KR (occurrence: KR)
  Receive Date: 20251217
  Receipt Date: 20251217
  Transmission Date: 20260117
  Serious: No
  Sender: ASTELLAS
  Company Number: KR-ASTELLAS-2025-AER-069056

PATIENT
  Sex: Female

DRUGS (2)
  1. VESICARE [Suspect]
     Active Substance: SOLIFENACIN SUCCINATE
     Indication: Diabetic vascular disorder
     Dosage: COATED TABLETS
     Route: 065
     Dates: start: 20250526, end: 20250529
  2. MIRABEGRON [Suspect]
     Active Substance: MIRABEGRON
     Indication: Diabetic vascular disorder
     Route: 065
     Dates: start: 20250526, end: 20250529

REACTIONS (2)
  - Constipation [Unknown]
  - Product use in unapproved indication [Unknown]

NARRATIVE: CASE EVENT DATE: 20250526
